FAERS Safety Report 8520640-8 (Version None)
Quarter: 2012Q3

REPORT INFORMATION
  Report Type: 
  Country: None (occurrence: None)
  Receive Date: 20120719
  Receipt Date: 20120706
  Transmission Date: 20120928
  Serious: Yes (Disabling)
  Sender: FDA-Public Use
  Company Number: GB-TEVA-347427ISR

PATIENT
  Age: 57 Year
  Sex: Male
  Weight: 101 kg

DRUGS (1)
  1. FENTANYL [Suspect]
     Indication: SPINAL PAIN
     Dosage: 200 - 400 MICROGRAMS. ONGOING.
     Route: 060
     Dates: start: 20030101

REACTIONS (1)
  - DENTAL CARIES [None]
